FAERS Safety Report 24712154 (Version 1)
Quarter: 2024Q4

REPORT INFORMATION
  Report Type: Report from Study
  Country: DE (occurrence: DE)
  Receive Date: 20241209
  Receipt Date: 20241209
  Transmission Date: 20250114
  Serious: Yes (Other)
  Sender: ABBVIE
  Company Number: DE-ABBVIE-6019424

PATIENT
  Age: 73 Year
  Sex: Female

DRUGS (1)
  1. FOSCARBIDOPA\FOSLEVODOPA [Suspect]
     Active Substance: FOSCARBIDOPA\FOSLEVODOPA
     Indication: Parkinson^s disease
     Dosage: CRN: 0.50ML/H, CR: 0.63ML/H, CRH: 0.65ML/H, ED: 0.2 ML
     Route: 058
     Dates: start: 20241018, end: 20241202

REACTIONS (4)
  - Epilepsy [Unknown]
  - Mobility decreased [Not Recovered/Not Resolved]
  - Gait inability [Not Recovered/Not Resolved]
  - Myoclonus [Unknown]

NARRATIVE: CASE EVENT DATE: 20240101
